FAERS Safety Report 14326418 (Version 1)
Quarter: 2017Q4

REPORT INFORMATION
  Report Type: Spontaneous
  Country: US (occurrence: US)
  Receive Date: 20171227
  Receipt Date: 20171227
  Transmission Date: 20180321
  Serious: No
  Sender: FDA-Public Use
  Company Number: US-BRISTOL-MYERS SQUIBB COMPANY-BMS-2017-116768

PATIENT
  Sex: Female

DRUGS (1)
  1. ELIQUIS [Suspect]
     Active Substance: APIXABAN
     Indication: PRODUCT USED FOR UNKNOWN INDICATION
     Dosage: UNK
     Route: 065
     Dates: start: 20171210

REACTIONS (8)
  - Eye disorder [Unknown]
  - Headache [Unknown]
  - Burning sensation [Unknown]
  - Feeling abnormal [Unknown]
  - Feeling cold [Unknown]
  - Confusional state [Unknown]
  - Conjunctivitis [Unknown]
  - Ocular hyperaemia [Unknown]
